FAERS Safety Report 24052528 (Version 4)
Quarter: 2024Q4

REPORT INFORMATION
  Report Type: Spontaneous
  Country: US (occurrence: US)
  Receive Date: 20240705
  Receipt Date: 20241224
  Transmission Date: 20250115
  Serious: No
  Sender: ROCHE
  Company Number: US-ROCHE-10000010142

PATIENT
  Age: 69 Year
  Sex: Male
  Weight: 77.11 kg

DRUGS (21)
  1. ACTEMRA [Suspect]
     Active Substance: TOCILIZUMAB
     Indication: Rheumatoid arthritis
     Dosage: THERAPY START DATE: 02-JUN-2024?IN THE THIGH
     Route: 058
  2. ACTEMRA [Suspect]
     Active Substance: TOCILIZUMAB
     Indication: Polymyalgia rheumatica
     Dosage: IN THE THIGH
     Route: 058
     Dates: start: 202403
  3. PREDNISONE [Suspect]
     Active Substance: PREDNISONE
     Indication: Polymyalgia rheumatica
     Route: 048
  4. PREDNISONE [Suspect]
     Active Substance: PREDNISONE
     Dosage: TAPERED DOSING
     Route: 048
  5. PREDNISONE [Suspect]
     Active Substance: PREDNISONE
     Route: 048
     Dates: start: 202309
  6. TOPAMAX [Concomitant]
     Active Substance: TOPIRAMATE
     Indication: Migraine
     Route: 048
     Dates: start: 2024
  7. TOPAMAX [Concomitant]
     Active Substance: TOPIRAMATE
     Dosage: 5 OR 10MG, DAILY
     Route: 048
     Dates: start: 20240112, end: 2024
  8. FAMOTIDINE [Concomitant]
     Active Substance: FAMOTIDINE
     Indication: Gastrooesophageal reflux disease
     Route: 048
     Dates: start: 202403
  9. FAMOTIDINE [Concomitant]
     Active Substance: FAMOTIDINE
     Route: 048
     Dates: end: 202403
  10. XARELTO [Concomitant]
     Active Substance: RIVAROXABAN
     Indication: Atrial fibrillation
     Route: 048
     Dates: start: 202401
  11. XARELTO [Concomitant]
     Active Substance: RIVAROXABAN
     Indication: Cerebrovascular accident prophylaxis
  12. IRBESARTAN [Concomitant]
     Active Substance: IRBESARTAN
     Indication: Hypertension
     Route: 048
     Dates: start: 20231227
  13. IRBESARTAN [Concomitant]
     Active Substance: IRBESARTAN
     Route: 048
     Dates: start: 2020, end: 20231227
  14. DILTIAZEM [Concomitant]
     Active Substance: DILTIAZEM
     Indication: Hypertension
     Dosage: 2 CAPSULES OF 120MG DAILY
     Route: 048
     Dates: start: 20231227
  15. DILTIAZEM [Concomitant]
     Active Substance: DILTIAZEM
     Indication: Atrial fibrillation
  16. SYNTHROID [Concomitant]
     Active Substance: LEVOTHYROXINE SODIUM
     Indication: Thyroid mass
     Route: 048
  17. CLARITIN [Concomitant]
     Active Substance: LORATADINE
     Indication: Seasonal allergy
     Route: 048
  18. CLARITIN [Concomitant]
     Active Substance: LORATADINE
     Indication: Pruritus
  19. PANTOPRAZOLE [Concomitant]
     Active Substance: PANTOPRAZOLE
     Indication: Gastrooesophageal reflux disease
     Route: 048
     Dates: start: 202403, end: 202404
  20. PANTOPRAZOLE [Concomitant]
     Active Substance: PANTOPRAZOLE
     Route: 048
  21. OMEPRAZOLE [Concomitant]
     Active Substance: OMEPRAZOLE
     Indication: Gastrooesophageal reflux disease
     Route: 048
     Dates: start: 202403, end: 202404

REACTIONS (11)
  - Wrong technique in product usage process [Unknown]
  - Pruritus [Recovered/Resolved]
  - Middle insomnia [Recovered/Resolved]
  - Gastrooesophageal reflux disease [Recovered/Resolved]
  - Blood creatinine increased [Recovered/Resolved]
  - Injection site haemorrhage [Unknown]
  - Product dose omission issue [Unknown]
  - Needle issue [Unknown]
  - Product complaint [Unknown]
  - Arthropod bite [Unknown]
  - Product storage error [Unknown]

NARRATIVE: CASE EVENT DATE: 20240301
